FAERS Safety Report 7329711-5 (Version None)
Quarter: 2011Q1

REPORT INFORMATION
  Report Type: 
  Country: None (occurrence: None)
  Receive Date: 20110303
  Receipt Date: 20110204
  Transmission Date: 20110831
  Serious: No
  Sender: FDA-Public Use
  Company Number: US-B.I. PHARMACEUTICALS,INC./RIDGEFIELD-2011-BP-03415BP

PATIENT
  Age: 53 Year
  Sex: Male

DRUGS (3)
  1. ADVAIR DISKUS 100/50 [Concomitant]
     Indication: ASTHMA
  2. METOPROLOL [Concomitant]
     Indication: HYPERTENSION
  3. ATROVENT HFA [Suspect]
     Indication: ASTHMA
     Dosage: 68 MCG
     Route: 055
     Dates: start: 20050101

REACTIONS (2)
  - CHEST DISCOMFORT [None]
  - DYSPNOEA [None]
